FAERS Safety Report 16115099 (Version 1)
Quarter: 2019Q1

REPORT INFORMATION
  Report Type: Spontaneous
  Country: US (occurrence: US)
  Receive Date: 20190325
  Receipt Date: 20190325
  Transmission Date: 20190418
  Serious: No
  Sender: FDA-Public Use
  Company Number: US-SMITH AND NEPHEW, INC-2018SMT00115

PATIENT
  Sex: Male

DRUGS (3)
  1. BACTINE [Concomitant]
     Active Substance: BENZALKONIUM CHLORIDE\LIDOCAINE
     Route: 061
  2. COLLAGENASE SANTYL [Suspect]
     Active Substance: COLLAGENASE CLOSTRIDIUM HISTOLYTICUM
     Indication: WOUND
     Route: 061
  3. LIDOCAINE. [Concomitant]
     Active Substance: LIDOCAINE
     Route: 061

REACTIONS (1)
  - Application site pain [Not Recovered/Not Resolved]
